FAERS Safety Report 25607750 (Version 1)
Quarter: 2025Q3

REPORT INFORMATION
  Report Type: Spontaneous
  Country: BR (occurrence: BR)
  Receive Date: 20250725
  Receipt Date: 20250725
  Transmission Date: 20251021
  Serious: Yes (Other)
  Sender: DAIICHI
  Company Number: BR-DSJP-DSE-2023-137750

PATIENT
  Age: 54 Year
  Sex: Female

DRUGS (5)
  1. ENHERTU [Suspect]
     Active Substance: FAM-TRASTUZUMAB DERUXTECAN-NXKI
     Indication: HER2 negative breast cancer
     Route: 065
  2. TAXOL [Concomitant]
     Active Substance: PACLITAXEL
     Indication: Product used for unknown indication
     Route: 065
  3. ERIBULIN [Concomitant]
     Active Substance: ERIBULIN
     Indication: HER2 negative breast cancer
     Route: 065
  4. ENDOCRINE THERAPY [Concomitant]
     Indication: Product used for unknown indication
     Route: 065
  5. CYCLIN INHIBITORS [Concomitant]
     Indication: Product used for unknown indication
     Route: 065

REACTIONS (2)
  - Metastases to lung [Unknown]
  - Pseudocirrhosis [Unknown]
